FAERS Safety Report 24313105 (Version 1)
Quarter: 2024Q3

REPORT INFORMATION
  Report Type: Spontaneous
  Country: US (occurrence: None)
  Receive Date: 20240912
  Receipt Date: 20240912
  Transmission Date: 20241017
  Serious: Yes (Other)
  Sender: Public
  Company Number: None

PATIENT
  Age: 69 Year
  Sex: Female

DRUGS (1)
  1. WELIREG [Suspect]
     Active Substance: BELZUTIFAN

REACTIONS (5)
  - Headache [None]
  - Fatigue [None]
  - Asthenia [None]
  - Carbon dioxide increased [None]
  - Therapy interrupted [None]

NARRATIVE: CASE EVENT DATE: 20240912
